FAERS Safety Report 10189406 (Version 1)
Quarter: 2014Q2

REPORT INFORMATION
  Report Type: Spontaneous
  Country: ES (occurrence: ES)
  Receive Date: 20140522
  Receipt Date: 20140522
  Transmission Date: 20141212
  Serious: Yes (Other)
  Sender: FDA-Public Use
  Company Number: ES-JNJFOC-20140509888

PATIENT
  Age: 64 Year
  Sex: Female

DRUGS (3)
  1. INFLIXIMAB, RECOMBINANT [Suspect]
     Indication: SARCOIDOSIS
     Dosage: INDUCTION REGIMEN OF 0, 2, 6 WEEKS AND THEN EVERY 8 WEEKS
     Route: 042
  2. METHOTREXATE [Suspect]
     Indication: SARCOIDOSIS
     Route: 065
  3. PREDNISONE [Concomitant]
     Indication: SARCOIDOSIS
     Route: 065

REACTIONS (2)
  - Pneumocystis jirovecii pneumonia [Unknown]
  - Off label use [Unknown]
